FAERS Safety Report 22601309 (Version 1)
Quarter: 2023Q2

REPORT INFORMATION
  Report Type: Spontaneous
  Country: US (occurrence: US)
  Receive Date: 20230614
  Receipt Date: 20230614
  Transmission Date: 20230722
  Serious: No
  Sender: FDA-Public Use
  Company Number: US RIGEL Pharmaceuticals, INC - 2023FOS000211

PATIENT
  Sex: Female
  Weight: 81.179 kg

DRUGS (1)
  1. TAVALISSE [Suspect]
     Active Substance: FOSTAMATINIB
     Indication: Immune thrombocytopenia
     Dosage: 150 MG, BID
     Route: 048
     Dates: start: 20200822

REACTIONS (2)
  - Hepatic cirrhosis [Unknown]
  - Hepatic vein thrombosis [Unknown]
